FAERS Safety Report 20156640 (Version 1)
Quarter: 2021Q4

REPORT INFORMATION
  Report Type: Spontaneous
  Country: US (occurrence: None)
  Receive Date: 20211207
  Receipt Date: 20211207
  Transmission Date: 20220303
  Serious: No
  Sender: FDA-Public Use
  Company Number: None

PATIENT
  Age: 34 Year
  Sex: Female
  Weight: 112.5 kg

DRUGS (1)
  1. ALLERGY RELIEF ANTIHISTAMINE [Suspect]
     Active Substance: DIPHENHYDRAMINE HYDROCHLORIDE
     Indication: Hypersensitivity
     Dosage: FREQUENCY : AS NEEDED;?
     Route: 048
     Dates: start: 20211119, end: 20211203

REACTIONS (2)
  - Peripheral swelling [None]
  - Pain in extremity [None]

NARRATIVE: CASE EVENT DATE: 20211201
